FAERS Safety Report 13961666 (Version 1)
Quarter: 2017Q3

REPORT INFORMATION
  Report Type: Report from Study
  Country: US (occurrence: US)
  Receive Date: 20170912
  Receipt Date: 20170912
  Transmission Date: 20171128
  Serious: Yes (Hospitalization, Other)
  Sender: FDA-Public Use
  Company Number: US-SHIRE-US201720804

PATIENT
  Sex: Female

DRUGS (1)
  1. ALFA 1-ANTITRYPSIN; RECOMBINANT [Suspect]
     Active Substance: .ALPHA.1-PROTEINASE INHIBITOR HUMAN
     Indication: ALPHA-1 ANTI-TRYPSIN DEFICIENCY
     Dosage: EVERY OTHER WEEK (PERIPHERAL TRANSFER)
     Route: 042

REACTIONS (1)
  - Pneumonia [Not Recovered/Not Resolved]
